FAERS Safety Report 15107838 (Version 1)
Quarter: 2018Q3

REPORT INFORMATION
  Report Type: Spontaneous
  Country: IT (occurrence: IT)
  Receive Date: 20180704
  Receipt Date: 20180704
  Transmission Date: 20181010
  Serious: Yes (Hospitalization)
  Sender: FDA-Public Use
  Company Number: IT-TEVA-2018-IT-919315

PATIENT
  Age: 57 Year
  Sex: Female

DRUGS (3)
  1. LORAZEPAM. [Suspect]
     Active Substance: LORAZEPAM
     Route: 048
     Dates: start: 20180418, end: 20180418
  2. AMISULPRIDE [Suspect]
     Active Substance: AMISULPRIDE
     Route: 048
     Dates: start: 20180418, end: 20180418
  3. PRAZENE 10 MG COMPRESSE [Suspect]
     Active Substance: PRAZEPAM
     Route: 048
     Dates: start: 20180418, end: 20180418

REACTIONS (3)
  - Suicide attempt [Unknown]
  - Sopor [Unknown]
  - Drug abuse [Unknown]

NARRATIVE: CASE EVENT DATE: 20180418
